FAERS Safety Report 5450722-9 (Version None)
Quarter: 2007Q3

REPORT INFORMATION
  Report Type: 
  Country: None (occurrence: None)
  Receive Date: 20070911
  Receipt Date: 20070827
  Transmission Date: 20080115
  Serious: Yes (Congenital Anomaly, Other)
  Sender: FDA-Public Use
  Company Number: 018215

PATIENT
  Sex: 0

DRUGS (1)
  1. CLARAVIS [Suspect]
     Dosage: 40 MG, QD, TRANSPLACENTAL
     Route: 064
     Dates: start: 20070124, end: 20070224

REACTIONS (4)
  - CONGENITAL CENTRAL NERVOUS SYSTEM ANOMALY [None]
  - CONGENITAL CHOROIDAL ANOMALY [None]
  - DRUG EXPOSURE DURING PREGNANCY [None]
  - HEART DISEASE CONGENITAL [None]
